FAERS Safety Report 8998909 (Version 7)
Quarter: 2014Q1

REPORT INFORMATION
  Report Type: Spontaneous
  Country: GB (occurrence: GB)
  Receive Date: 20130103
  Receipt Date: 20140114
  Transmission Date: 20141002
  Serious: Yes (Death, Hospitalization, Other)
  Sender: FDA-Public Use
  Company Number: GB-PFIZER INC-2013000944

PATIENT
  Age: 9 Month
  Sex: Female
  Weight: 8.5 kg

DRUGS (7)
  1. PHENYTOIN SODIUM [Suspect]
     Indication: CONVULSION
     Dosage: 180 MG, OVER 20 MINS
     Route: 042
     Dates: start: 20121128, end: 20121128
  2. PHENYTOIN SODIUM [Suspect]
     Indication: STATUS EPILEPTICUS
  3. KEPPRA [Suspect]
     Indication: EPILEPSY
     Dosage: 120 MG, 2X/DAY
     Route: 048
     Dates: start: 20120709, end: 20121128
  4. BUCCOLAM [Suspect]
     Indication: CONVULSION
     Dosage: 2.5 MG, AT 5 MINS AND 15 MINS
     Route: 002
     Dates: start: 20121128, end: 20121128
  5. EPILIM [Suspect]
     Indication: CONVULSION
     Dosage: 140 MG, 2X/DAY
     Route: 048
     Dates: start: 20120718, end: 20121128
  6. DIAZEPAM [Concomitant]
     Indication: CONVULSION
     Dosage: UNK
     Route: 054
     Dates: start: 20121127, end: 20121127
  7. PARACETAMOL [Concomitant]
     Indication: PRODUCT USED FOR UNKNOWN INDICATION
     Dosage: UNK
     Route: 065

REACTIONS (9)
  - Respiratory acidosis [Fatal]
  - Drug ineffective [Fatal]
  - Cardiac arrest neonatal [Fatal]
  - Cardiac arrest [Fatal]
  - Prescribed overdose [Unknown]
  - Tachycardia [Not Recovered/Not Resolved]
  - Hypoventilation [Not Recovered/Not Resolved]
  - Pulseless electrical activity [Unknown]
  - Convulsion [Unknown]
